FAERS Safety Report 6732100-5 (Version None)
Quarter: 2010Q2

REPORT INFORMATION
  Report Type: 
  Country: None (occurrence: None)
  Receive Date: 20100519
  Receipt Date: 20100511
  Transmission Date: 20101027
  Serious: Yes (Other)
  Sender: FDA-Public Use
  Company Number: JP-PFIZER INC-2010036086

PATIENT
  Age: 66 Year
  Sex: Female
  Weight: 60 kg

DRUGS (10)
  1. FARMORUBICIN [Suspect]
     Indication: BREAST CANCER
     Dosage: 118.5 MG, 1X/DAY
     Route: 042
     Dates: start: 20100222
  2. ENDOXAN [Suspect]
     Indication: BREAST CANCER
     Dosage: 948 MG, 1X/DAY
     Route: 042
     Dates: start: 20100222
  3. GRAN [Concomitant]
     Indication: FEBRILE NEUTROPENIA
     Dosage: UNK
     Route: 042
     Dates: start: 20100303, end: 20100306
  4. CRAVIT [Concomitant]
     Route: 048
  5. LORCAM [Concomitant]
     Indication: PROCEDURAL PAIN
     Dosage: UNK
     Route: 048
     Dates: start: 20100222, end: 20100224
  6. ROCEPHIN [Concomitant]
     Route: 042
  7. SEROTONE [Concomitant]
     Indication: VOMITING
     Dosage: UNK
     Dates: start: 20100222, end: 20100223
  8. DECADRON [Concomitant]
     Indication: VOMITING
     Dosage: UNK
     Dates: start: 20100222, end: 20100224
  9. NAUZELIN [Concomitant]
     Indication: VOMITING
     Dosage: UNK
     Route: 048
     Dates: start: 20100222, end: 20100228
  10. MUCOSTA [Concomitant]
     Indication: GASTRITIS
     Dosage: UNK
     Route: 048
     Dates: start: 20100222, end: 20100224

REACTIONS (3)
  - ECZEMA [None]
  - FEBRILE NEUTROPENIA [None]
  - INTERSTITIAL LUNG DISEASE [None]
